FAERS Safety Report 17876583 (Version 9)
Quarter: 2025Q2

REPORT INFORMATION
  Report Type: Report from Study
  Country: DE (occurrence: DE)
  Receive Date: 20200609
  Receipt Date: 20250516
  Transmission Date: 20250716
  Serious: Yes (Other)
  Sender: NOVARTIS
  Company Number: NVSC2020DE159372

PATIENT
  Age: 11 Year
  Sex: Male
  Weight: 70 kg

DRUGS (2)
  1. ILARIS [Suspect]
     Active Substance: CANAKINUMAB
     Indication: Muckle-Wells syndrome
     Dosage: 300 MG, Q4W
     Route: 058
     Dates: start: 20171127
  2. ILARIS [Suspect]
     Active Substance: CANAKINUMAB
     Route: 058
     Dates: start: 20200412

REACTIONS (2)
  - Atypical pneumonia [Recovered/Resolved]
  - Toxoplasmosis [Recovering/Resolving]

NARRATIVE: CASE EVENT DATE: 20200304
